FAERS Safety Report 6200795-0 (Version None)
Quarter: 2009Q2

REPORT INFORMATION
  Report Type: 
  Country: None (occurrence: None)
  Receive Date: 20090522
  Receipt Date: 20090520
  Transmission Date: 20091009
  Serious: Yes (Other)
  Sender: FDA-Public Use
  Company Number: CA-JNJCH-2009009245

PATIENT
  Sex: Female

DRUGS (1)
  1. LISTERINE WHITENING DISOLVING STRIPS [Suspect]
     Indication: DENTAL CARE
     Dosage: TEXT:3 STRIPS TOTAL; 1 ONE DAY AND 2 THE NEXT
     Route: 048
     Dates: start: 20090329, end: 20090330

REACTIONS (4)
  - APPLICATION SITE BURN [None]
  - LIP SWELLING [None]
  - PARAESTHESIA [None]
  - STOMATITIS [None]
